FAERS Safety Report 5723955-1 (Version None)
Quarter: 2008Q2

REPORT INFORMATION
  Report Type: 
  Country: None (occurrence: None)
  Receive Date: 20080428
  Receipt Date: 20080415
  Transmission Date: 20081010
  Serious: Yes (Death, Hospitalization)
  Sender: FDA-Public Use
  Company Number: 163-21880-08031362

PATIENT
  Age: 63 Year
  Sex: Male

DRUGS (1)
  1. REVLIMID [Suspect]
     Indication: MULTIPLE MYELOMA
     Dosage: 5 MG, QD X 21 D, ORAL
     Route: 048
     Dates: start: 20080229, end: 20080401

REACTIONS (2)
  - HAEMATEMESIS [None]
  - PULMONARY EMBOLISM [None]
